FAERS Safety Report 9586844 (Version 4)
Quarter: 2017Q1

REPORT INFORMATION
  Report Type: Report from Study
  Country: DE (occurrence: DE)
  Receive Date: 20131003
  Receipt Date: 20170315
  Transmission Date: 20170429
  Serious: Yes (Hospitalization)
  Sender: FDA-Public Use
  Company Number: DE-ROCHE-1283499

PATIENT
  Age: 69 Year
  Sex: Male
  Weight: 72 kg

DRUGS (5)
  1. FLUOROURACIL. [Suspect]
     Active Substance: FLUOROURACIL
     Indication: COLORECTAL CANCER METASTATIC
     Dosage: ON 16/SEP/2013 HE RECIVED MOST RECENT DOSE 3200 MG/M2 PRIOR TO SAE.E
     Route: 042
     Dates: start: 20130830
  2. OXALIPLATIN. [Suspect]
     Active Substance: OXALIPLATIN
     Indication: COLORECTAL CANCER METASTATIC
     Dosage: ON 16/SEP/2013 HE RECIVED MOST RECNT DOSE 85 MG/M2 PRIOR TO SAE.
     Route: 042
     Dates: start: 20130830
  3. BEVACIZUMAB [Suspect]
     Active Substance: BEVACIZUMAB
     Indication: COLORECTAL CANCER METASTATIC
     Dosage: ON 16/SEP/2013 HE RECIVED MOST RECENT DOSE 5MG/KG PRIOR TO SAE.
     Route: 042
     Dates: start: 20130830
  4. FOLINIC ACID [Suspect]
     Active Substance: LEUCOVORIN
     Indication: COLORECTAL CANCER METASTATIC
     Dosage: ON 16/SEP/2013 HE RECIVED MOST RECENT DOSE 200 MG/M2 PRIOR TO SAE.
     Route: 042
     Dates: start: 20130830
  5. METOPROLOL. [Concomitant]
     Active Substance: METOPROLOL
     Indication: HYPERTENSION
     Route: 048
     Dates: start: 1996

REACTIONS (1)
  - Cervical vertebral fracture [Recovered/Resolved with Sequelae]

NARRATIVE: CASE EVENT DATE: 20130923
